FAERS Safety Report 4747758-X (Version None)
Quarter: 2005Q3

REPORT INFORMATION
  Report Type: 
  Country: None (occurrence: None)
  Receive Date: 20050816
  Receipt Date: 20050804
  Transmission Date: 20060218
  Serious: Yes (Hospitalization)
  Sender: FDA-Public Use
  Company Number: 2005-BP-12286RO

PATIENT
  Age: 72 Year
  Sex: Male

DRUGS (22)
  1. PREDNISONE TAB [Suspect]
     Indication: PROSTATE CANCER
     Dosage: 10 MG DAILY, PO
     Route: 048
     Dates: start: 20050511, end: 20050628
  2. IROFULVEN (IROFULVEN) [Suspect]
     Indication: PROSTATE CANCER
     Dosage: 0.4 MG/KG ON DAY 1 + 0.3 MG/KG ON DAY 1 + 0.3 MG/KG ON DAY 15, IV
     Route: 042
     Dates: start: 20050511, end: 20050628
  3. CAPECITABINE (CAPECITABINE) [Suspect]
     Indication: PROSTATE CANCER
     Dosage: 1000 MG/M2 BID DAYS 1-14/CYCLE; AND ONCE ON DAY 15 OF 28 DAY CYCLE, PO
     Route: 048
     Dates: start: 20050511, end: 20050628
  4. GLUCOSAMINE (GLUCOSAMINE) [Concomitant]
  5. ENOXAPARIN (ENOXAPARIN) [Concomitant]
  6. ATORVASTATIN CALCIUM [Concomitant]
  7. STOOL SOFTENER (DOCUSATE SODIUM) [Concomitant]
  8. TIMOLOL MALEATE [Concomitant]
  9. ALLOPURINOL [Concomitant]
  10. DIGOXIN [Concomitant]
  11. ASPIRIN [Concomitant]
  12. METOPROLOL TARTRATE [Concomitant]
  13. LISINOPRIL [Concomitant]
  14. FUROSEMIDE [Concomitant]
  15. SPIRONOLACTONE [Concomitant]
  16. OXYCODONE W/ACETAMINOPHEN (OXYCODONE/APAP) [Concomitant]
  17. CALCIUM (CALCIUM) [Concomitant]
  18. DEXAMETHASONE [Concomitant]
  19. LEUPRORELIN ACETATE (LEUPRORELIN ACETATE) [Concomitant]
  20. DARBEPOETIN ALFA (DARBEPOETIN ALFA) [Concomitant]
  21. ZOLEDRONIC ACID (ZOLEDRONIC ACID) [Concomitant]
  22. MULTIVITAMIN [Concomitant]

REACTIONS (12)
  - ABASIA [None]
  - ANAEMIA [None]
  - ASTHENIA [None]
  - ATRIAL FIBRILLATION [None]
  - CONDITION AGGRAVATED [None]
  - DECREASED APPETITE [None]
  - DECUBITUS ULCER [None]
  - DYSPNOEA EXERTIONAL [None]
  - GASTRIC ULCER [None]
  - HEART RATE INCREASED [None]
  - PHOTOSENSITIVITY REACTION [None]
  - RESPIRATORY RATE INCREASED [None]
